FAERS Safety Report 7996180-1 (Version None)
Quarter: 2011Q4

REPORT INFORMATION
  Report Type: 
  Country: None (occurrence: None)
  Receive Date: 20111220
  Receipt Date: 20111215
  Transmission Date: 20120403
  Serious: Yes (Other)
  Sender: FDA-Public Use
  Company Number: PHEH2011US010701

PATIENT
  Sex: Female
  Weight: 51.247 kg

DRUGS (14)
  1. LASIX [Concomitant]
     Dosage: 80 MG, UNK
     Route: 048
  2. ESTRACE [Concomitant]
     Dosage: 0.1 MG, UNK
     Route: 067
  3. METOLAZONE [Concomitant]
     Dosage: 2.5 G, UNK
     Route: 048
  4. VITAMIN C [Concomitant]
     Dosage: 1000 MG, DAILY
     Route: 048
  5. ALPRAZOLAM [Concomitant]
     Route: 048
  6. SPIRONOLACTONE [Concomitant]
     Dosage: 100 MG, DAILY
     Route: 048
  7. MAGNESIUM OXIDE [Concomitant]
     Dosage: 400 MG, DAILY
     Route: 048
  8. CALCIUM D3 ^STADA^ [Concomitant]
  9. RECLAST [Suspect]
     Indication: OSTEOPOROSIS
     Dosage: UNK UKN, UNK
     Route: 042
     Dates: start: 20101115
  10. DIGOXIN [Concomitant]
     Dosage: 125 UG, DAILY
     Route: 048
  11. VITAMIN A [Concomitant]
     Dosage: 8000 U, DAILY
     Route: 048
  12. COUMADIN [Concomitant]
  13. FISH OIL [Concomitant]
     Dosage: 1000 MG, DAILY
     Route: 048
  14. ASPIRIN [Concomitant]
     Dosage: 81 MG, DAILY
     Route: 048

REACTIONS (2)
  - LUNG DISORDER [None]
  - LUNG INFILTRATION [None]
